FAERS Safety Report 4625653-4 (Version None)
Quarter: 2005Q1

REPORT INFORMATION
  Report Type: 
  Country: None (occurrence: None)
  Receive Date: 20050330
  Receipt Date: 20050316
  Transmission Date: 20050727
  Serious: Yes (Hospitalization)
  Sender: FDA-Public Use
  Company Number: JP_050306002

PATIENT
  Age: 67 Year
  Sex: Male
  Weight: 48 kg

DRUGS (7)
  1. GEMZAR [Suspect]
     Indication: LUNG SQUAMOUS CELL CARCINOMA STAGE UNSPECIFIED
     Dosage: 1350 MG OTHER
     Route: 050
     Dates: start: 20050203, end: 20050302
  2. NAVELBINE 9VINORELBINE DITARTRATE) [Concomitant]
  3. MUCOSLVAN (AMBROXOL HYDROCHLORIDE) [Concomitant]
  4. MEDICON (DEXTROMETHORPHAN HYDROBROMIDE) [Concomitant]
  5. CODEINE PHOSPHATE [Concomitant]
  6. NASEA (RAMOSETRON HYDROCHLORIDE) [Concomitant]
  7. SERONATE 9AZASETRON HYDROCHLORIDE) [Concomitant]

REACTIONS (4)
  - FEELING ABNORMAL [None]
  - HEART RATE IRREGULAR [None]
  - PALPITATIONS [None]
  - SUPRAVENTRICULAR EXTRASYSTOLES [None]
